FAERS Safety Report 12522232 (Version 1)
Quarter: 2016Q3

REPORT INFORMATION
  Report Type: Spontaneous
  Country: US (occurrence: US)
  Receive Date: 20160701
  Receipt Date: 20160701
  Transmission Date: 20161109
  Serious: No
  Sender: FDA-Public Use
  Company Number: US-EAGLE PHARMACEUTICALS, INC.-US-2016EAG000566

PATIENT

DRUGS (1)
  1. BENDEKA [Suspect]
     Active Substance: BENDAMUSTINE HYDROCHLORIDE
     Indication: EXPOSURE TO BODY FLUID
     Dosage: UNK

REACTIONS (3)
  - Exposure to body fluid [Unknown]
  - Feeling abnormal [Unknown]
  - Skin irritation [Unknown]

NARRATIVE: CASE EVENT DATE: 20160525
